FAERS Safety Report 23969465 (Version 1)
Quarter: 2024Q2

REPORT INFORMATION
  Report Type: Report from Study
  Country: US (occurrence: US)
  Receive Date: 20240612
  Receipt Date: 20240612
  Transmission Date: 20240716
  Serious: Yes (Hospitalization)
  Sender: FDA-Public Use
  Company Number: US-ABBVIE-5795016

PATIENT
  Sex: Male

DRUGS (1)
  1. VENCLEXTA [Suspect]
     Active Substance: VENETOCLAX
     Indication: Chronic lymphocytic leukaemia
     Dosage: DOSE: TAKE 4TABLETS BY MOUTH ONCE DAILY WITH FOOD AND A FULL GLASS OF WATER,?FORM STRENGTH:100 MI...
     Route: 048

REACTIONS (1)
  - Blood glucose decreased [Unknown]
